FAERS Safety Report 4799040-2 (Version None)
Quarter: 2005Q4

REPORT INFORMATION
  Report Type: 
  Country: None (occurrence: None)
  Receive Date: 20051014
  Receipt Date: 20050808
  Transmission Date: 20060501
  Serious: Yes (Hospitalization, Other)
  Sender: FDA-Public Use
  Company Number: JP-MERCK-0508USA02080

PATIENT
  Age: 40 Year
  Sex: Female

DRUGS (7)
  1. SINGULAIR [Suspect]
     Indication: ASTHMA
     Route: 048
     Dates: start: 20040529, end: 20050124
  2. THEO-DUR [Concomitant]
     Route: 048
     Dates: start: 20040529, end: 20041226
  3. THEO-DUR [Concomitant]
     Route: 048
     Dates: start: 20041227, end: 20050819
  4. FLUTIDE [Concomitant]
     Route: 055
     Dates: start: 20041206
  5. MUCODYNE [Concomitant]
     Route: 048
     Dates: start: 20041227, end: 20050105
  6. COUGH, COLD, AND FLU THERAPIES (UNSPECIFIED) [Concomitant]
     Route: 048
     Dates: start: 20041227, end: 20050105
  7. LORCAM [Concomitant]
     Route: 048

REACTIONS (1)
  - ALLERGIC GRANULOMATOUS ANGIITIS [None]
